FAERS Safety Report 15228330 (Version 1)
Quarter: 2018Q3

REPORT INFORMATION
  Report Type: Spontaneous
  Country: US (occurrence: US)
  Receive Date: 20180801
  Receipt Date: 20180801
  Transmission Date: 20181010
  Serious: No
  Sender: FDA-Public Use
  Company Number: US-BAYER-2018-137014

PATIENT
  Age: 72 Year
  Sex: Female

DRUGS (3)
  1. FINACEA [Suspect]
     Active Substance: AZELAIC ACID
     Dosage: UNK
     Route: 061
  2. MOISTURIZER [Concomitant]
     Active Substance: UNSPECIFIED INGREDIENT
  3. SUNSCREEN [Concomitant]
     Active Substance: HOMOSALATE\OCTINOXATE\OCTISALATE\OXYBENZONE\TITANIUM DIOXIDE

REACTIONS (3)
  - Skin discolouration [None]
  - Erythema [None]
  - Product use issue [None]
